FAERS Safety Report 9690772 (Version 1)
Quarter: 2013Q4

REPORT INFORMATION
  Report Type: Spontaneous
  Country: US (occurrence: None)
  Receive Date: 20131114
  Receipt Date: 20131114
  Transmission Date: 20140711
  Serious: Yes (Other)
  Sender: FDA-Public Use
  Company Number: None

PATIENT
  Age: 58 Year
  Sex: Male
  Weight: 72.58 kg

DRUGS (1)
  1. RECLAST [Suspect]
     Indication: OSTEOPOROSIS
     Dosage: INFUSION
     Dates: start: 20131023, end: 20131023

REACTIONS (6)
  - Pyrexia [None]
  - Gastrooesophageal reflux disease [None]
  - Arthralgia [None]
  - Impaired work ability [None]
  - Ocular hyperaemia [None]
  - Poisoning [None]
